FAERS Safety Report 7571914-9 (Version None)
Quarter: 2011Q2

REPORT INFORMATION
  Report Type: 
  Country: None (occurrence: None)
  Receive Date: 20110624
  Receipt Date: 20101109
  Transmission Date: 20111010
  Serious: No
  Sender: FDA-Public Use
  Company Number: A0891410A

PATIENT
  Age: 24 Year
  Sex: Male

DRUGS (2)
  1. VERAMYST [Suspect]
     Indication: SINUS DISORDER
     Dosage: 1SPR PER DAY
     Route: 045
     Dates: start: 20090501, end: 20100501
  2. ZYRTEC-D 12 HOUR [Concomitant]

REACTIONS (3)
  - COUGH [None]
  - MALAISE [None]
  - ASTHENIA [None]
